FAERS Safety Report 10601413 (Version 2)
Quarter: 2015Q4

REPORT INFORMATION
  Report Type: Report from Study
  Country: NL (occurrence: NL)
  Receive Date: 20141124
  Receipt Date: 20151130
  Transmission Date: 20160304
  Serious: Yes (Death)
  Sender: FDA-Public Use
  Company Number: NL-WATSON-2014-25195

PATIENT
  Sex: Male

DRUGS (1)
  1. TRELSTAR [Suspect]
     Active Substance: TRIPTORELIN PAMOATE
     Indication: PROSTATE CANCER METASTATIC
     Dosage: 11.25 MG, ONCE EVERY 3 MONTHS
     Route: 065
     Dates: start: 20140805, end: 20140805

REACTIONS (2)
  - Prostate cancer [Fatal]
  - Prostate cancer metastatic [Fatal]
